FAERS Safety Report 9549555 (Version 2)
Quarter: 2013Q4

REPORT INFORMATION
  Report Type: Spontaneous
  Country: JP (occurrence: JP)
  Receive Date: 20130924
  Receipt Date: 20131004
  Transmission Date: 20140711
  Serious: Yes (Death)
  Sender: FDA-Public Use
  Company Number: JP-BAXTER-2013BAX036567

PATIENT
  Sex: Male

DRUGS (1)
  1. DIANEAL-N PD-2 1.5 PD SOLUTION [Suspect]
     Indication: RENAL FAILURE CHRONIC
     Route: 033
     Dates: start: 20120801

REACTIONS (1)
  - Death [Fatal]
